FAERS Safety Report 20319390 (Version 1)
Quarter: 2022Q1

REPORT INFORMATION
  Report Type: Spontaneous
  Country: US (occurrence: US)
  Receive Date: 20220110
  Receipt Date: 20220110
  Transmission Date: 20220423
  Serious: Yes (Disabling)
  Sender: FDA-Public Use
  Company Number: US-BoehringerIngelheim-2022-BI-106632

PATIENT
  Age: 71 Year
  Sex: Male

DRUGS (1)
  1. PRADAXA [Suspect]
     Active Substance: DABIGATRAN ETEXILATE MESYLATE
     Indication: Product used for unknown indication
     Route: 065

REACTIONS (2)
  - Cardiac disorder [Not Recovered/Not Resolved]
  - Illness [Not Recovered/Not Resolved]
